FAERS Safety Report 23616456 (Version 1)
Quarter: 2024Q1

REPORT INFORMATION
  Report Type: Report from Study
  Country: US (occurrence: US)
  Receive Date: 20240311
  Receipt Date: 20240311
  Transmission Date: 20240410
  Serious: Yes (Other)
  Sender: FDA-Public Use
  Company Number: US-BAYER-2024A034463

PATIENT
  Age: 35 Year
  Sex: Female
  Weight: 78.458 kg

DRUGS (1)
  1. ADEMPAS [Suspect]
     Active Substance: RIOCIGUAT
     Indication: Pulmonary hypertension
     Dosage: 0.5 MG, TID
     Route: 048
     Dates: start: 202402

REACTIONS (5)
  - Impaired gastric emptying [None]
  - Dyspepsia [None]
  - Nausea [None]
  - Dyspnoea [None]
  - Weight increased [None]
